FAERS Safety Report 6361909-5 (Version None)
Quarter: 2009Q3

REPORT INFORMATION
  Report Type: 
  Country: None (occurrence: None)
  Receive Date: 20090918
  Receipt Date: 20090907
  Transmission Date: 20100115
  Serious: Yes (Other)
  Sender: FDA-Public Use
  Company Number: CR-WYE-H11051609

PATIENT
  Sex: Female

DRUGS (1)
  1. PANTECTA [Suspect]
     Dosage: UNKNOWN

REACTIONS (2)
  - BREAST CANCER [None]
  - IMPAIRED HEALING [None]
